FAERS Safety Report 13334059 (Version 1)
Quarter: 2017Q1

REPORT INFORMATION
  Report Type: Spontaneous
  Country: DE (occurrence: DE)
  Receive Date: 20170313
  Receipt Date: 20170313
  Transmission Date: 20170428
  Serious: Yes (Other)
  Sender: FDA-Public Use
  Company Number: GXKR2017DE001556

PATIENT

DRUGS (4)
  1. LAMOTRIGIN [Concomitant]
     Active Substance: LAMOTRIGINE
     Indication: DEPRESSION
     Dosage: MATERNAL DOSE: 125 [MG/D ]/ IN THE BEGINNING 125 MG/D, AFTER GESTATIONAL WEEK 4  REDUCTION OF DOSAGE
     Route: 064
  2. SERTRALINE [Suspect]
     Active Substance: SERTRALINE HYDROCHLORIDE
     Indication: DEPRESSION
     Dosage: MATERNAL DOSE: 75 [MG/D ]/ IN THE BEGINNING 75 MG/D, AFTER GESTATIONAL WEEK 4 REDUCTION TO 50 MG/D
     Route: 064
     Dates: start: 20160125, end: 20161017
  3. FOLIC ACID. [Concomitant]
     Active Substance: FOLIC ACID
     Indication: PROPHYLAXIS OF NEURAL TUBE DEFECT
     Dosage: MATERNAL DOSE: 0.8 [MG/D ]
     Route: 064
     Dates: start: 20160123, end: 20160222
  4. L-THYROXINE [Concomitant]
     Active Substance: LEVOTHYROXINE
     Indication: HYPOTHYROIDISM
     Dosage: MATERNAL DOSE: 50 [?G/D ]
     Route: 064
     Dates: start: 20160125, end: 20161017

REACTIONS (1)
  - Small for dates baby [Recovered/Resolved]

NARRATIVE: CASE EVENT DATE: 20161017
